FAERS Safety Report 4381150-5 (Version None)
Quarter: 2004Q2

REPORT INFORMATION
  Report Type: 
  Country: None (occurrence: None)
  Receive Date: 20040616
  Receipt Date: 20040602
  Transmission Date: 20050107
  Serious: Yes (Death, Life-Threatening, Hospitalization, Other)
  Sender: FDA-Public Use
  Company Number: USA-2004-0013442

PATIENT
  Age: 32 Year
  Sex: Female
  Weight: 46.7 kg

DRUGS (4)
  1. SPECTRACEF [Suspect]
     Indication: CELLULITIS
     Dosage: 200 MG, BID, UNKNOWN
     Dates: start: 20040219
  2. SPECTRACEF [Suspect]
     Indication: FOLLICULITIS
     Dosage: 200 MG, BID, UNKNOWN
     Dates: start: 20040219
  3. LEXAPRO [Concomitant]
  4. INSULIN [Concomitant]

REACTIONS (6)
  - ANXIETY [None]
  - CARDIO-RESPIRATORY ARREST [None]
  - DIABETIC KETOACIDOSIS [None]
  - ELECTROMECHANICAL DISSOCIATION [None]
  - NAUSEA [None]
  - VOMITING [None]
